FAERS Safety Report 8119790-X (Version None)
Quarter: 2011Q4

REPORT INFORMATION
  Report Type: 
  Country: None (occurrence: None)
  Receive Date: 20111227
  Receipt Date: 20111128
  Transmission Date: 20120403
  Serious: No
  Sender: FDA-Public Use
  Company Number: PHEH2011US05964

PATIENT
  Age: 46 Year
  Sex: Female
  Weight: 49.9 kg

DRUGS (8)
  1. ZANAFLEX [Concomitant]
  2. VITAMIN B12 [Concomitant]
  3. GILENYA [Suspect]
     Dosage: 0.5 MG, QD, ORAL
     Route: 048
  4. VITAMIN D [Concomitant]
  5. BACLOFEN [Concomitant]
  6. FOSAMAX [Concomitant]
  7. CELEXA [Concomitant]
  8. CALCIUM D (CALCIUM, COLECALCIFEROL) [Concomitant]

REACTIONS (6)
  - ARTHRALGIA [None]
  - OEDEMA PERIPHERAL [None]
  - PAIN IN EXTREMITY [None]
  - MUSCULOSKELETAL PAIN [None]
  - DIZZINESS [None]
  - BACK PAIN [None]
